FAERS Safety Report 4309502-X (Version None)
Quarter: 2004Q1

REPORT INFORMATION
  Report Type: 
  Country: None (occurrence: None)
  Receive Date: 20040227
  Receipt Date: 20040116
  Transmission Date: 20041129
  Serious: Yes (Death, Hospitalization)
  Sender: FDA-Public Use
  Company Number: 200410450GDDC

PATIENT
  Age: 73 Year
  Sex: Male

DRUGS (7)
  1. DOCETAXEL [Suspect]
     Indication: LUNG NEOPLASM MALIGNANT
     Route: 042
     Dates: start: 20031229, end: 20031229
  2. DOCETAXEL [Suspect]
     Indication: METASTASES TO BONE
     Route: 042
     Dates: start: 20031229, end: 20031229
  3. CISPLATIN [Suspect]
     Indication: LUNG NEOPLASM MALIGNANT
     Route: 042
     Dates: start: 20031230, end: 20031231
  4. MORPHINE [Concomitant]
     Indication: METASTASES TO BONE
  5. DEXAMETHASONE [Concomitant]
     Route: 048
     Dates: start: 20031228, end: 20031230
  6. METHYLPREDNISOLONE [Concomitant]
     Route: 042
     Dates: start: 20040102, end: 20040105
  7. MEGESTROL [Concomitant]
     Route: 048
     Dates: start: 20040102, end: 20040105

REACTIONS (15)
  - ACIDOSIS [None]
  - ACTIVATED PARTIAL THROMBOPLASTIN TIME SHORTENED [None]
  - BLOOD PRESSURE DECREASED [None]
  - BONE MARROW DEPRESSION [None]
  - CHOLESTASIS [None]
  - GASTROINTESTINAL HAEMORRHAGE [None]
  - HAEMATEMESIS [None]
  - HEPATOCELLULAR DAMAGE [None]
  - MULTI-ORGAN FAILURE [None]
  - PULMONARY OEDEMA [None]
  - RENAL FAILURE [None]
  - RESPIRATORY FAILURE [None]
  - RESPIRATORY RATE INCREASED [None]
  - SOMNOLENCE [None]
  - URINARY INCONTINENCE [None]
